FAERS Safety Report 18319143 (Version 1)
Quarter: 2020Q3

REPORT INFORMATION
  Report Type: Spontaneous
  Country: US (occurrence: US)
  Receive Date: 20200928
  Receipt Date: 20200928
  Transmission Date: 20201103
  Serious: No
  Sender: FDA-Public Use
  Company Number: None

PATIENT
  Age: 34 Year
  Sex: Female

DRUGS (7)
  1. QUETIPINE 25 [Concomitant]
     Dates: start: 20200813
  2. SOFOSBUVIR/VELPATASVIR [Suspect]
     Active Substance: SOFOSBUVIR\VELPATASVIR
     Indication: CHRONIC HEPATITIS C
     Route: 048
     Dates: start: 20200903
  3. DULOXETINE 30MG [Concomitant]
     Active Substance: DULOXETINE
     Dates: start: 20200813
  4. QUETIPINE 50MG [Concomitant]
     Dates: start: 20200813
  5. ONDASTERON 4 MG [Concomitant]
     Dates: start: 20200813
  6. VOLTAREN [Concomitant]
     Active Substance: DICLOFENAC SODIUM
     Dates: start: 20110329
  7. ALPRAZOLAM 2MG [Concomitant]
     Active Substance: ALPRAZOLAM
     Dates: start: 20200813

REACTIONS (2)
  - Fatigue [None]
  - Headache [None]

NARRATIVE: CASE EVENT DATE: 20200910
